FAERS Safety Report 18794810 (Version 1)
Quarter: 2021Q1

REPORT INFORMATION
  Report Type: Spontaneous
  Country: ES (occurrence: ES)
  Receive Date: 20210127
  Receipt Date: 20210127
  Transmission Date: 20210419
  Serious: Yes (Life-Threatening, Hospitalization)
  Sender: FDA-Public Use
  Company Number: ES-TEVA-2020-ES-1865005

PATIENT
  Age: 70 Year
  Sex: Male

DRUGS (7)
  1. DISTRANEURINE 192 MG CAPSULAS BLANDAS [Interacting]
     Active Substance: CLOMETHIAZOLE
     Indication: AGITATION
     Dosage: 192 MILLIGRAM DAILY; 0?0?1
     Route: 048
     Dates: start: 20201020, end: 20201022
  2. CLOMIPRAMINA HIDROCLORURO (633CH) [Interacting]
     Active Substance: CLOMIPRAMINE HYDROCHLORIDE
     Indication: CONFUSIONAL STATE
     Dosage: 75 MILLIGRAM DAILY; 1?0?1
     Route: 048
     Dates: start: 20201021, end: 20201022
  3. QUETIAPINA (1136A) [Suspect]
     Active Substance: QUETIAPINE
     Indication: AGITATION
     Dosage: 175 MG
     Route: 048
     Dates: start: 20201021, end: 20201022
  4. QUETIAPINA (1136A) [Interacting]
     Active Substance: QUETIAPINE
     Dosage: 1?2?3, UNIT DOSE: 150 MG
     Route: 048
     Dates: start: 20201019, end: 20201020
  5. QUETIAPINA (1136A) [Interacting]
     Active Substance: QUETIAPINE
     Dosage: 1?1?2, UNIT DOSE: 100MG
     Route: 048
     Dates: start: 20201018, end: 20201019
  6. HALOPERIDOL. [Interacting]
     Active Substance: HALOPERIDOL
     Indication: AGITATION
     Dosage: 10 MG AS A RANSOM
     Route: 042
     Dates: start: 20201021, end: 20201021
  7. FORMOTEROL ALDO?UNION 12 MICROGRAMOS POLVO PARA INHALACION (CAPSULAS D [Concomitant]
     Indication: CHRONIC OBSTRUCTIVE PULMONARY DISEASE
     Dosage: 2 DOSAGE FORMS DAILY; STRENGTH:12 MICROGRAMS,60 INHALATION CAPSULES,
     Route: 055
     Dates: start: 20191014, end: 20201218

REACTIONS (3)
  - Neuroleptic malignant syndrome [Recovering/Resolving]
  - Drug interaction [Unknown]
  - Off label use [Unknown]

NARRATIVE: CASE EVENT DATE: 20201021
